FAERS Safety Report 5579849-8 (Version None)
Quarter: 2008Q1

REPORT INFORMATION
  Report Type: 
  Country: None (occurrence: None)
  Receive Date: 20080102
  Receipt Date: 20071221
  Transmission Date: 20080703
  Serious: Yes (Hospitalization)
  Sender: FDA-Public Use
  Company Number: GB-PFIZER INC-2007107596

PATIENT

DRUGS (1)
  1. EPANUTIN SUSPENSION [Suspect]
     Route: 048

REACTIONS (1)
  - CORONARY ARTERY BYPASS [None]
